FAERS Safety Report 4806754-4 (Version None)
Quarter: 2005Q4

REPORT INFORMATION
  Report Type: 
  Country: None (occurrence: None)
  Receive Date: 20051019
  Receipt Date: 20050707
  Transmission Date: 20060501
  Serious: Yes (Other)
  Sender: FDA-Public Use
  Company Number: EWC051046288

PATIENT
  Age: 50 Year
  Sex: Female
  Weight: 54 kg

DRUGS (5)
  1. GEMZAR [Suspect]
     Indication: NON-SMALL CELL LUNG CANCER
     Dosage: 450 MG/6
     Dates: start: 20041026, end: 20050202
  2. OXYCONTIN [Concomitant]
  3. ANZEMET (DOLASETRON MESILATE) [Concomitant]
  4. MACPERAN (METOCLOPRAMIDE) [Concomitant]
  5. MEGACE (MEFESTROL ACETATE) [Concomitant]

REACTIONS (5)
  - ANAEMIA [None]
  - ARTHRALGIA [None]
  - DRUG INEFFECTIVE [None]
  - DYSPNOEA [None]
  - THROMBOCYTOPENIA [None]
